FAERS Safety Report 4721256-1 (Version None)
Quarter: 2005Q3

REPORT INFORMATION
  Report Type: 
  Country: None (occurrence: None)
  Receive Date: 20050720
  Receipt Date: 20050704
  Transmission Date: 20060218
  Serious: Yes (Other)
  Sender: FDA-Public Use
  Company Number: 215726

PATIENT
  Age: 62 Year
  Sex: Female

DRUGS (6)
  1. AVASTIN [Suspect]
     Indication: COLORECTAL CANCER METASTATIC
     Dosage: 400 MG, INTRAVENOUS
     Route: 042
     Dates: start: 20050426, end: 20050621
  2. FLUOROURACIL [Concomitant]
  3. LEUCOVORIN CALCIUM [Concomitant]
  4. CLEMASTINE [Concomitant]
  5. RANITIDINE [Concomitant]
  6. ACETAMINOPHEN [Concomitant]

REACTIONS (3)
  - HAEMATURIA [None]
  - HYPERTENSION [None]
  - PETECHIAE [None]
